FAERS Safety Report 7582934-2 (Version None)
Quarter: 2011Q2

REPORT INFORMATION
  Report Type: 
  Country: None (occurrence: None)
  Receive Date: 20110630
  Receipt Date: 20110616
  Transmission Date: 20111010
  Serious: Yes (Hospitalization)
  Sender: FDA-Public Use
  Company Number: JP-MYLANLABS-2011S1012932

PATIENT
  Age: 64 Year
  Sex: Female
  Weight: 37 kg

DRUGS (8)
  1. PACLITAXEL [Suspect]
     Indication: LUNG ADENOCARCINOMA STAGE III
     Route: 065
  2. CISPLATIN [Suspect]
     Indication: LUNG ADENOCARCINOMA STAGE III
     Route: 065
  3. GEFITINIB [Suspect]
     Indication: LUNG ADENOCARCINOMA STAGE III
     Route: 065
  4. CARBOPLATIN [Suspect]
     Indication: LUNG ADENOCARCINOMA STAGE III
     Route: 065
  5. DOCETAXEL [Suspect]
     Indication: LUNG ADENOCARCINOMA STAGE III
     Route: 065
     Dates: end: 20090101
  6. IRINOTECAN HYDROCHLORIDE [Suspect]
     Indication: LUNG ADENOCARCINOMA STAGE III
     Route: 065
  7. GEMCITABINE [Suspect]
     Indication: LUNG ADENOCARCINOMA STAGE III
     Route: 065
  8. VINORELBINE [Suspect]
     Indication: LUNG ADENOCARCINOMA STAGE III
     Route: 065

REACTIONS (2)
  - ACUTE MYELOID LEUKAEMIA [None]
  - NEUTROPENIA [None]
